FAERS Safety Report 7930884-1 (Version None)
Quarter: 2011Q4

REPORT INFORMATION
  Report Type: 
  Country: None (occurrence: None)
  Receive Date: 20111117
  Receipt Date: 20111117
  Transmission Date: 20120403
  Serious: Yes (Death, Hospitalization)
  Sender: FDA-Public Use
  Company Number: None

PATIENT
  Sex: Female
  Weight: 67.6 kg

DRUGS (3)
  1. CYTARABINE [Suspect]
     Dosage: 3680 MG
     Dates: end: 20111027
  2. DAUNORUBICIN HCL [Suspect]
     Dosage: 255 MG
     Dates: end: 20111018
  3. ETOPOSIDE [Suspect]
     Dosage: 850 MG
     Dates: end: 20111018

REACTIONS (19)
  - CAECITIS [None]
  - SEPSIS [None]
  - HAEMODYNAMIC INSTABILITY [None]
  - HEPATIC FAILURE [None]
  - PERICARDITIS [None]
  - VAGINAL HAEMORRHAGE [None]
  - MULTI-ORGAN DISORDER [None]
  - GASTROINTESTINAL DISORDER [None]
  - VOMITING [None]
  - DISSEMINATED INTRAVASCULAR COAGULATION [None]
  - LUNG DISORDER [None]
  - GENERAL PHYSICAL HEALTH DETERIORATION [None]
  - ABDOMINAL PAIN [None]
  - NEUTROPENIC COLITIS [None]
  - RENAL FAILURE ACUTE [None]
  - PLATELET COUNT DECREASED [None]
  - GASTROINTESTINAL NECROSIS [None]
  - ADHESION [None]
  - HAEMATOMA [None]
